FAERS Safety Report 9359392 (Version 1)
Quarter: 2013Q2

REPORT INFORMATION
  Report Type: Spontaneous
  Country: US (occurrence: US)
  Receive Date: 20130620
  Receipt Date: 20130620
  Transmission Date: 20140414
  Serious: No
  Sender: FDA-Public Use
  Company Number: US-US-EMD SERONO, INC.-7059140

PATIENT
  Sex: Female

DRUGS (7)
  1. REBIF [Suspect]
     Indication: PRODUCT USED FOR UNKNOWN INDICATION
     Route: 058
     Dates: start: 20050112, end: 2010
  2. MOTRIN [Concomitant]
     Indication: PRODUCT USED FOR UNKNOWN INDICATION
  3. LUVOX [Concomitant]
     Indication: OBSESSIVE-COMPULSIVE DISORDER
  4. NEURONTIN [Concomitant]
     Indication: OBSESSIVE-COMPULSIVE DISORDER
  5. PROVIGIL [Concomitant]
     Indication: OBSESSIVE-COMPULSIVE DISORDER
  6. VALIUM [Concomitant]
     Indication: OBSESSIVE-COMPULSIVE DISORDER
  7. VALIUM [Concomitant]
     Indication: OBSESSIVE-COMPULSIVE DISORDER

REACTIONS (6)
  - Hyperaesthesia [Unknown]
  - Hypertension [Unknown]
  - Pain in extremity [Unknown]
  - Hyperhidrosis [Unknown]
  - Hepatic enzyme increased [Recovered/Resolved]
  - Injection site reaction [Unknown]
